FAERS Safety Report 4628873-8 (Version None)
Quarter: 2005Q2

REPORT INFORMATION
  Report Type: 
  Country: None (occurrence: None)
  Receive Date: 20050406
  Receipt Date: 20050217
  Transmission Date: 20051028
  Serious: Yes (Hospitalization)
  Sender: FDA-Public Use
  Company Number: US-AMGEN-US115793

PATIENT
  Sex: Male

DRUGS (4)
  1. ETANERCEPT [Suspect]
     Indication: JUVENILE CHRONIC MYELOMONOCYTIC LEUKAEMIA
     Route: 058
     Dates: start: 20050101, end: 20050302
  2. VANCOMYCIN [Suspect]
     Dates: end: 20050216
  3. PENICILLIN VK [Concomitant]
  4. HYDROXYUREA [Concomitant]

REACTIONS (7)
  - ADENOVIRUS INFECTION [None]
  - BACTERIAL INFECTION [None]
  - DIARRHOEA [None]
  - PNEUMONIA NECROTISING [None]
  - PULMONARY GRANULOMA [None]
  - PYREXIA [None]
  - RED MAN SYNDROME [None]
